FAERS Safety Report 5498546-0 (Version None)
Quarter: 2007Q4

REPORT INFORMATION
  Report Type: 
  Country: None (occurrence: None)
  Receive Date: 20071026
  Receipt Date: 20071017
  Transmission Date: 20080405
  Serious: Yes (Other)
  Sender: FDA-Public Use
  Company Number: PHNR2005AU01689

PATIENT
  Sex: Male

DRUGS (3)
  1. CLOZARIL [Suspect]
     Dosage: UP TO 100 MG/DAY
     Route: 048
     Dates: start: 20051116, end: 20051201
  2. CLOZARIL [Suspect]
     Dosage: 12.5 - 75 MG PER DAY
     Dates: start: 20060213, end: 20060220
  3. CLOZARIL [Suspect]
     Dosage: 12.5MG PER DAY
     Dates: start: 20071022

REACTIONS (5)
  - BUNDLE BRANCH BLOCK [None]
  - ELECTROCARDIOGRAM ABNORMAL [None]
  - HEART RATE INCREASED [None]
  - SINUS TACHYCARDIA [None]
  - TACHYCARDIA [None]
